FAERS Safety Report 6761797-9 (Version None)
Quarter: 2010Q2

REPORT INFORMATION
  Report Type: 
  Country: None (occurrence: None)
  Receive Date: 20100529
  Receipt Date: 20100322
  Transmission Date: 20101027
  Serious: Yes (Death)
  Sender: FDA-Public Use
  Company Number: US-IGSA-IG643

PATIENT
  Sex: Female
  Weight: 74.8 kg

DRUGS (13)
  1. ALBUMIN (HUMAN) [Suspect]
     Indication: SUBARACHNOID HAEMORRHAGE
     Dosage: 1.875 G/KG
     Dates: start: 20100303
  2. ALBUMIN (HUMAN) [Suspect]
     Indication: SUBARACHNOID HAEMORRHAGE
     Dosage: 1.875 G/KG
     Dates: start: 20100304
  3. MANNITOL [Concomitant]
  4. CEFEPIME (ANTIBIOTIC) [Concomitant]
  5. ACETAMINOPHEN [Concomitant]
  6. VANCOMYCIN [Concomitant]
  7. PREDNISONE [Concomitant]
  8. MIRALAX (PEG) [Concomitant]
  9. PROTONIX [Concomitant]
  10. NIMODIPINE [Concomitant]
  11. DOCUSATE AND CLORHEXIDINE [Concomitant]
  12. LASIX [Concomitant]
  13. RED BLOOD CELLS (RBC) [Concomitant]

REACTIONS (8)
  - ACUTE RESPIRATORY DISTRESS SYNDROME [None]
  - CARDIAC FAILURE CONGESTIVE [None]
  - CEREBRAL INFARCTION [None]
  - DEHYDRATION [None]
  - PNEUMONIA ASPIRATION [None]
  - PULMONARY OEDEMA [None]
  - SEPSIS [None]
  - TRANSFUSION-RELATED ACUTE LUNG INJURY [None]
